FAERS Safety Report 10914215 (Version 1)
Quarter: 2015Q1

REPORT INFORMATION
  Report Type: Spontaneous
  Country: IT (occurrence: IT)
  Receive Date: 20150313
  Receipt Date: 20150313
  Transmission Date: 20150721
  Serious: Yes (Death)
  Sender: FDA-Public Use
  Company Number: PHHY2015IT029116

PATIENT
  Age: 79 Year
  Sex: Male

DRUGS (1)
  1. WARFARIN [Suspect]
     Active Substance: WARFARIN
     Indication: PRODUCT USED FOR UNKNOWN INDICATION
     Route: 065

REACTIONS (10)
  - General physical health deterioration [Fatal]
  - Pain [Fatal]
  - Skin necrosis [Fatal]
  - Skin ulcer [Fatal]
  - Peripheral arterial occlusive disease [Fatal]
  - Skin wound [Fatal]
  - Multi-organ failure [Fatal]
  - Staphylococcal skin infection [Fatal]
  - Calciphylaxis [Fatal]
  - Pseudomonas infection [Fatal]
